FAERS Safety Report 8512134-0 (Version None)
Quarter: 2012Q3

REPORT INFORMATION
  Report Type: 
  Country: None (occurrence: None)
  Receive Date: 20120716
  Receipt Date: 20120706
  Transmission Date: 20120928
  Serious: Yes (Other)
  Sender: FDA-Public Use
  Company Number: GB-ASTRAZENECA-2012SE46519

PATIENT
  Sex: Female

DRUGS (4)
  1. DIPRIVAN [Suspect]
     Route: 042
     Dates: start: 20100901, end: 20100901
  2. ANOTHER DRUG [Concomitant]
  3. FENTANYL [Concomitant]
  4. MORPHINE [Concomitant]

REACTIONS (3)
  - HAEMATOMA [None]
  - HAEMORRHAGE [None]
  - MALAISE [None]
